FAERS Safety Report 13291870 (Version 1)
Quarter: 2017Q1

REPORT INFORMATION
  Report Type: Spontaneous
  Country: US (occurrence: US)
  Receive Date: 20170302
  Receipt Date: 20170302
  Transmission Date: 20170428
  Serious: Yes (Hospitalization)
  Sender: FDA-Public Use
  Company Number: None

PATIENT
  Age: 45 Year
  Sex: Male

DRUGS (6)
  1. ENBREL [Suspect]
     Active Substance: ETANERCEPT
     Indication: RHEUMATOID ARTHRITIS
     Route: 058
     Dates: start: 20141009
  2. NAPROXEN. [Concomitant]
     Active Substance: NAPROXEN
  3. HYDROCODONE [Concomitant]
     Active Substance: HYDROCODONE
  4. FENOFIBRATE. [Concomitant]
     Active Substance: FENOFIBRATE
  5. VITAMIN D [Concomitant]
     Active Substance: CHOLECALCIFEROL
  6. PERCOCET [Concomitant]
     Active Substance: ACETAMINOPHEN\OXYCODONE HYDROCHLORIDE

REACTIONS (5)
  - Rib fracture [None]
  - Upper limb fracture [None]
  - Arthritis [None]
  - Road traffic accident [None]
  - Splenic rupture [None]

NARRATIVE: CASE EVENT DATE: 20170221
